FAERS Safety Report 9160576 (Version 1)
Quarter: 2013Q1

REPORT INFORMATION
  Report Type: Spontaneous
  Country: CH (occurrence: CH)
  Receive Date: 20130313
  Receipt Date: 20130313
  Transmission Date: 20140127
  Serious: Yes (Other)
  Sender: FDA-Public Use
  Company Number: PHHY2013CH019633

PATIENT
  Age: 27 Year
  Sex: Male

DRUGS (4)
  1. GILENYA [Suspect]
     Indication: MULTIPLE SCLEROSIS
     Dosage: 1 DF, QD
     Route: 048
     Dates: start: 20130207
  2. XANAX [Concomitant]
     Dosage: 3 MG, DAILY
  3. LYRICA [Concomitant]
     Dosage: 900 MG, DAILY
  4. CIPRALEX [Concomitant]

REACTIONS (13)
  - Hepatic pain [Unknown]
  - Abdominal pain [Unknown]
  - Amnesia [Unknown]
  - Speech disorder [Unknown]
  - Cognitive disorder [Unknown]
  - Fatigue [Unknown]
  - Agitation [Unknown]
  - Hypersomnia [Unknown]
  - Insomnia [Unknown]
  - Nausea [Unknown]
  - Abscess [Unknown]
  - Weight decreased [Unknown]
  - Influenza like illness [Unknown]
